FAERS Safety Report 25544510 (Version 5)
Quarter: 2025Q3

REPORT INFORMATION
  Report Type: Report from Study
  Country: US (occurrence: US)
  Receive Date: 20250711
  Receipt Date: 20250804
  Transmission Date: 20251020
  Serious: Yes (Hospitalization, Other)
  Sender: ABBVIE
  Company Number: US-ABBVIE-6135209

PATIENT
  Age: 85 Year
  Sex: Female
  Weight: 66.678 kg

DRUGS (35)
  1. CREON [Suspect]
     Active Substance: PANCRELIPASE AMYLASE\PANCRELIPASE LIPASE\PANCRELIPASE PROTEASE
     Indication: Pancreatic failure
     Route: 048
     Dates: start: 202410
  2. CREON [Suspect]
     Active Substance: PANCRELIPASE AMYLASE\PANCRELIPASE LIPASE\PANCRELIPASE PROTEASE
     Indication: Pancreatic failure
     Route: 048
     Dates: start: 2013, end: 202409
  3. CREON [Suspect]
     Active Substance: PANCRELIPASE AMYLASE\PANCRELIPASE LIPASE\PANCRELIPASE PROTEASE
     Indication: Pancreatic failure
     Dosage: (36,000-114,000 UNITS) DELAYED-RELEASE CAPSULES; ONE CAPSULE FOUR TIMES DAILY
     Route: 048
     Dates: start: 20250205
  4. CREON [Suspect]
     Active Substance: PANCRELIPASE AMYLASE\PANCRELIPASE LIPASE\PANCRELIPASE PROTEASE
     Indication: Pancreatic failure
     Route: 048
  5. TYLENOL [Concomitant]
     Active Substance: ACETAMINOPHEN
     Indication: Arthralgia
     Route: 048
     Dates: start: 20220713
  6. GAS-X [Concomitant]
     Active Substance: DIMETHICONE
     Indication: Abdominal distension
     Dosage: STRENGTH - EXTRA STRENGTH 125 MG; CHEW AT 12 NOON WITH LUNCH
     Route: 048
     Dates: start: 20250506
  7. MELATONIN [Concomitant]
     Active Substance: MELATONIN
     Indication: Sleep disorder
     Route: 048
     Dates: start: 20250321
  8. TROSPIUM CHLORIDE [Concomitant]
     Active Substance: TROSPIUM CHLORIDE
     Indication: Urinary incontinence
  9. CITRATE [Concomitant]
     Active Substance: CITRIC ACID MONOHYDRATE
     Indication: Supplementation therapy
  10. MIRALAX [Suspect]
     Active Substance: POLYETHYLENE GLYCOL 3350
     Indication: Constipation
     Dosage: STRENGTH - 17 G?STOPPED IN 2025
     Route: 048
     Dates: start: 20250210
  11. MIRALAX [Suspect]
     Active Substance: POLYETHYLENE GLYCOL 3350
     Indication: Constipation
     Route: 048
     Dates: start: 20250518
  12. LIPITOR [Concomitant]
     Active Substance: ATORVASTATIN CALCIUM
     Indication: Blood cholesterol abnormal
     Dosage: STRENGTH - 40 MG; TAKE 1 TABLET BY MOUTH NIGHTLY
     Route: 048
     Dates: start: 20250604
  13. CRANBERRY [Concomitant]
     Active Substance: CRANBERRY
     Indication: Nutritional supplementation
     Route: 048
  14. METAMUCIL [Concomitant]
     Active Substance: PLANTAGO SEED
     Indication: Supplementation therapy
  15. BIOTIN [Concomitant]
     Active Substance: BIOTIN
     Indication: Vitamin supplementation
     Dosage: 5000 MCG CAPS; TAKE 5,000 MCG BY MOUTH DAILY; COMPONENT OF VITAMIN B COMPLEX
     Route: 048
     Dates: start: 20250212
  16. ASPIRIN [Concomitant]
     Active Substance: ASPIRIN
     Indication: Thrombosis prophylaxis
     Dosage: FORM - 81 MG CHEWABLE TABLET; CHEW 1 TABLET DAILY.
     Route: 048
     Dates: start: 20250519
  17. PAXLOVID [Concomitant]
     Active Substance: NIRMATRELVIR\RITONAVIR
     Indication: COVID-19
  18. FLONASE [Concomitant]
     Active Substance: FLUTICASONE PROPIONATE
     Indication: Nasal congestion
     Route: 045
     Dates: start: 20240428
  19. AMITIZA [Suspect]
     Active Substance: LUBIPROSTONE
     Indication: Constipation
     Dosage: STRENGTH - 8 MCG;
     Route: 048
     Dates: start: 20250610, end: 20250701
  20. ESTRACE [Concomitant]
     Active Substance: ESTRADIOL
     Indication: Product used for unknown indication
     Dosage: STRENGTH - 0.1 MG/GM
     Route: 067
     Dates: start: 20240806, end: 2025
  21. SERTRALINE [Concomitant]
     Active Substance: SERTRALINE HYDROCHLORIDE
     Indication: Product used for unknown indication
     Dates: start: 2014
  22. VENLAFAXINE [Concomitant]
     Active Substance: VENLAFAXINE HYDROCHLORIDE
     Indication: Product used for unknown indication
     Dates: start: 2016
  23. TRAZODONE [Concomitant]
     Active Substance: TRAZODONE HYDROCHLORIDE
     Indication: Product used for unknown indication
     Dates: start: 2022
  24. DULOXETINE [Concomitant]
     Active Substance: DULOXETINE
     Indication: Product used for unknown indication
     Dates: start: 2025
  25. BUSPAR [Concomitant]
     Active Substance: BUSPIRONE HYDROCHLORIDE
     Indication: Product used for unknown indication
     Dosage: TRIAL; JUN OFFER TO TITRATE UP; STRENGTH - 5 MG TABLET
     Route: 048
     Dates: start: 20250604, end: 20250708
  26. CALCIUM CITRATE [Concomitant]
     Active Substance: CALCIUM CITRATE
     Indication: Product used for unknown indication
     Route: 048
  27. VOLTAREN [Concomitant]
     Active Substance: DICLOFENAC SODIUM
     Indication: Arthralgia
     Dosage: STRENGTH - 1%
     Route: 061
  28. SANCTURA [Concomitant]
     Active Substance: TROSPIUM CHLORIDE
     Indication: Hypertonic bladder
     Dosage: STRENGTH - 20 MG
     Route: 048
     Dates: start: 20250616, end: 20250716
  29. ZINC OXIDE [Concomitant]
     Active Substance: ZINC OXIDE
     Indication: Product used for unknown indication
  30. ANTIVERT [Concomitant]
     Active Substance: MECLIZINE HYDROCHLORIDE
     Indication: Dizziness
     Dates: start: 20250518
  31. PROTONIX [Concomitant]
     Active Substance: PANTOPRAZOLE SODIUM
     Indication: Peptic ulcer
     Dosage: STRNGTH - 40 MG; ENTERIC COATED TABLET; TAKE 1 TABLET 15 TO 20 DAY MINUTES BEFORE BREAKFAST.
     Route: 048
     Dates: start: 20250514
  32. PSYLLIUM [Concomitant]
     Active Substance: PLANTAGO SEED
     Indication: Product used for unknown indication
     Dosage: STRENGTH - 0.36G; 2 CAPSULE WITH 8OZ OF FLUID
     Route: 048
     Dates: start: 20250518
  33. SENNA [Concomitant]
     Active Substance: SENNOSIDES
     Indication: Constipation
     Dosage: STRENGTH - 8.6 MG
     Route: 048
     Dates: start: 20250518
  34. LINZESS [Concomitant]
     Active Substance: LINACLOTIDE
     Indication: Intestinal obstruction
     Dates: start: 202505
  35. ACETAMINOPHEN [Concomitant]
     Active Substance: ACETAMINOPHEN
     Indication: Product used for unknown indication

REACTIONS (24)
  - Appendicitis [Recovered/Resolved]
  - Dizziness [Recovering/Resolving]
  - Gastrointestinal obstruction [Not Recovered/Not Resolved]
  - Vertigo [Recovered/Resolved]
  - Abdominal distension [Not Recovered/Not Resolved]
  - Haemoglobin decreased [Recovered/Resolved]
  - Anaemia [Recovered/Resolved]
  - Constipation [Not Recovered/Not Resolved]
  - COVID-19 [Recovered/Resolved]
  - Abdominal rigidity [Not Recovered/Not Resolved]
  - Gastrointestinal pain [Unknown]
  - Arthritis [Recovered/Resolved with Sequelae]
  - Intestinal obstruction [Not Recovered/Not Resolved]
  - Anastomotic ulcer [Unknown]
  - Drug ineffective [Unknown]
  - Arthralgia [Unknown]
  - Nightmare [Unknown]
  - Anxiety [Unknown]
  - Stress [Unknown]
  - Gastrointestinal ulcer haemorrhage [Recovered/Resolved]
  - Migraine [Unknown]
  - Abdominal adhesions [Not Recovered/Not Resolved]
  - Pollakiuria [Unknown]
  - Onychoclasis [Unknown]

NARRATIVE: CASE EVENT DATE: 20200101
